FAERS Safety Report 9168184 (Version 3)
Quarter: 2013Q2

REPORT INFORMATION
  Report Type: Spontaneous
  Country: AU (occurrence: AU)
  Receive Date: 20130318
  Receipt Date: 20130417
  Transmission Date: 20140414
  Serious: Yes (Death)
  Sender: FDA-Public Use
  Company Number: AU-B.I. PHARMACEUTICALS,INC./RIDGEFIELD-2013-AU-00297AU

PATIENT
  Age: 58 Year
  Sex: Male

DRUGS (3)
  1. PRADAXA [Suspect]
     Indication: AORTIC VALVE REPLACEMENT
     Dates: start: 201210, end: 20130125
  2. TELMISARTAN [Concomitant]
  3. MULTIVITAMIN [Concomitant]

REACTIONS (5)
  - Cerebral haemorrhage [Fatal]
  - Cerebral artery thrombosis [Fatal]
  - Altered state of consciousness [Unknown]
  - Aphasia [Unknown]
  - Off label use [Unknown]
